FAERS Safety Report 11534241 (Version 1)
Quarter: 2015Q3

REPORT INFORMATION
  Report Type: Spontaneous
  Country: BE (occurrence: BE)
  Receive Date: 20150922
  Receipt Date: 20150922
  Transmission Date: 20151125
  Serious: Yes (Other)
  Sender: FDA-Public Use
  Company Number: BE-AMGEN-BELSP2015096586

PATIENT
  Age: 53 Year
  Sex: Male

DRUGS (4)
  1. MEDROL [Suspect]
     Active Substance: METHYLPREDNISOLONE
     Dosage: 8 MG, DAILY
     Route: 048
  2. ENBREL [Suspect]
     Active Substance: ETANERCEPT
     Indication: RHEUMATOID ARTHRITIS
     Dosage: 50 MG, WEEKLY
     Route: 058
     Dates: start: 20150106
  3. MEDROL [Suspect]
     Active Substance: METHYLPREDNISOLONE
     Dosage: 32 MG, DAILY
     Route: 048
  4. MEDROL [Suspect]
     Active Substance: METHYLPREDNISOLONE
     Indication: PRODUCT USED FOR UNKNOWN INDICATION
     Dosage: 4 MG, DAILY
     Route: 048

REACTIONS (2)
  - Rheumatoid arthritis [Unknown]
  - Condition aggravated [Unknown]
